FAERS Safety Report 14621645 (Version 1)
Quarter: 2018Q1

REPORT INFORMATION
  Report Type: Spontaneous
  Country: US (occurrence: US)
  Receive Date: 20180310
  Receipt Date: 20180310
  Transmission Date: 20180509
  Serious: No
  Sender: FDA-Public Use
  Company Number: US-JNJFOC-20180231198

PATIENT
  Age: 12 Year
  Sex: Male

DRUGS (1)
  1. CHILDRENS TYLENOL [Suspect]
     Active Substance: ACETAMINOPHEN
     Indication: PYREXIA
     Route: 048

REACTIONS (7)
  - Drug administered to patient of inappropriate age [Unknown]
  - Crying [Unknown]
  - Off label use [Unknown]
  - Hallucination [Unknown]
  - Fear [Unknown]
  - Visual impairment [Unknown]
  - Somnolence [Unknown]
